FAERS Safety Report 7317005-3 (Version None)
Quarter: 2011Q1

REPORT INFORMATION
  Report Type: 
  Country: None (occurrence: None)
  Receive Date: 20110226
  Receipt Date: 20100915
  Transmission Date: 20110831
  Serious: No
  Sender: FDA-Public Use
  Company Number: US-ALLERGAN-1011932US

PATIENT
  Age: 50 Year
  Sex: Female

DRUGS (2)
  1. BOTOX COSMETIC [Suspect]
     Dosage: 61 UNITS, SINGLE
     Route: 030
     Dates: start: 20100114, end: 20100114
  2. BOTOX COSMETIC [Suspect]
     Indication: SKIN WRINKLING
     Dosage: 75 UNITS, SINGLE
     Route: 030
     Dates: start: 20100819, end: 20100819

REACTIONS (2)
  - SWELLING FACE [None]
  - EYELID OEDEMA [None]
